FAERS Safety Report 11105759 (Version 1)
Quarter: 2015Q2

REPORT INFORMATION
  Report Type: Spontaneous
  Country: US (occurrence: US)
  Receive Date: 20150512
  Receipt Date: 20150512
  Transmission Date: 20150821
  Serious: No
  Sender: FDA-Public Use
  Company Number: US-CELGENEUS-USA-2015051315

PATIENT
  Sex: Male
  Weight: 75.82 kg

DRUGS (1)
  1. VIDAZA [Suspect]
     Active Substance: AZACITIDINE
     Indication: MYELODYSPLASTIC SYNDROME
     Dosage: 100 MILLIGRAM
     Route: 050

REACTIONS (2)
  - Tachycardia [Not Recovered/Not Resolved]
  - Rash pruritic [Not Recovered/Not Resolved]
